FAERS Safety Report 14621170 (Version 1)
Quarter: 2018Q1

REPORT INFORMATION
  Report Type: Spontaneous
  Country: FR (occurrence: FR)
  Receive Date: 20180310
  Receipt Date: 20180310
  Transmission Date: 20180509
  Serious: Yes (Hospitalization)
  Sender: FDA-Public Use
  Company Number: FR-AUROBINDO-AUR-APL-2018-012838

PATIENT
  Age: 3 Year
  Sex: Male

DRUGS (1)
  1. ARIPIPRAZOLE. [Suspect]
     Active Substance: ARIPIPRAZOLE
     Indication: PRODUCT USED FOR UNKNOWN INDICATION
     Dosage: 15 DF, UNK
     Route: 048
     Dates: start: 20150416, end: 20150416

REACTIONS (4)
  - Accidental overdose [Unknown]
  - Somnolence [Unknown]
  - Vomiting [Unknown]
  - Dysarthria [Unknown]

NARRATIVE: CASE EVENT DATE: 20150416
